FAERS Safety Report 16208052 (Version 1)
Quarter: 2019Q2

REPORT INFORMATION
  Report Type: Spontaneous
  Country: US (occurrence: US)
  Receive Date: 20190417
  Receipt Date: 20190417
  Transmission Date: 20190711
  Serious: Yes (Hospitalization)
  Sender: FDA-Public Use
  Company Number: US-PFIZER INC-2019153171

PATIENT
  Age: 79 Year
  Sex: Female

DRUGS (1)
  1. BENDROFLUMETHIAZIDE/NADOLOL [Suspect]
     Active Substance: BENDROFLUMETHIAZIDE\NADOLOL
     Dosage: UNK

REACTIONS (3)
  - Pain [Unknown]
  - Blood potassium decreased [Unknown]
  - Lip swelling [Unknown]
